FAERS Safety Report 21440126 (Version 2)
Quarter: 2023Q1

REPORT INFORMATION
  Report Type: Spontaneous
  Country: US (occurrence: US)
  Receive Date: 20221011
  Receipt Date: 20230323
  Transmission Date: 20230417
  Serious: No
  Sender: FDA-Public Use
  Company Number: US-PFIZER INC-202101881872

PATIENT
  Age: 64 Year
  Sex: Male

DRUGS (1)
  1. XALKORI [Suspect]
     Active Substance: CRIZOTINIB
     Indication: Lung carcinoma cell type unspecified stage IV
     Dosage: 250 MG, 1X/DAY

REACTIONS (3)
  - Cytology abnormal [Not Recovered/Not Resolved]
  - Intentional product misuse [Unknown]
  - Hypersomnia [Unknown]
